FAERS Safety Report 6351278-9 (Version None)
Quarter: 2009Q3

REPORT INFORMATION
  Report Type: 
  Country: None (occurrence: None)
  Receive Date: 20090912
  Receipt Date: 20090622
  Transmission Date: 20100115
  Serious: No
  Sender: FDA-Public Use
  Company Number: US-ABBOTT-07P-163-0378751-00

PATIENT
  Sex: Female
  Weight: 34.504 kg

DRUGS (13)
  1. HUMIRA [Suspect]
     Indication: CROHN'S DISEASE
     Dosage: 160 MILLIGRAMS X1
     Route: 058
     Dates: start: 20070819
  2. HUMIRA [Suspect]
     Dosage: 80 MILLIGRAMS X 1
     Dates: start: 20070819
  3. HUMIRA [Suspect]
  4. PREDNISONE [Concomitant]
     Indication: DRUG USE FOR UNKNOWN INDICATION
  5. ASPIRIN AND DIPYRIDAMOLE [Concomitant]
     Indication: DRUG USE FOR UNKNOWN INDICATION
  6. PAROXETINE HCL [Concomitant]
     Indication: DRUG USE FOR UNKNOWN INDICATION
  7. POTASSIUM CHLORIDE [Concomitant]
     Indication: DRUG USE FOR UNKNOWN INDICATION
  8. ALPRAZOLAM [Concomitant]
     Indication: DRUG USE FOR UNKNOWN INDICATION
  9. DIAZEPAM [Concomitant]
     Indication: DRUG USE FOR UNKNOWN INDICATION
  10. M.V.I. [Concomitant]
     Indication: DRUG USE FOR UNKNOWN INDICATION
  11. DURAGESIC-100 [Concomitant]
     Indication: DRUG USE FOR UNKNOWN INDICATION
  12. FENTANYL CITRATE [Concomitant]
     Indication: DRUG USE FOR UNKNOWN INDICATION
  13. FOLIC ACID [Concomitant]
     Indication: DRUG USE FOR UNKNOWN INDICATION

REACTIONS (1)
  - INCORRECT DOSE ADMINISTERED [None]
